FAERS Safety Report 26081278 (Version 1)
Quarter: 2025Q4

REPORT INFORMATION
  Report Type: Spontaneous
  Country: US (occurrence: US)
  Receive Date: 20251124
  Receipt Date: 20251124
  Transmission Date: 20260118
  Serious: No
  Sender: ALVOGEN
  Company Number: None

PATIENT
  Sex: Female

DRUGS (1)
  1. TERIPARATIDE [Suspect]
     Active Substance: TERIPARATIDE
     Indication: Osteoporosis
     Dosage: EXP DATE: SEP-2025 GTIN#00347781652890

REACTIONS (3)
  - Product contamination [Unknown]
  - Liquid product physical issue [Unknown]
  - Poor quality product administered [Unknown]
